FAERS Safety Report 7663178-2 (Version None)
Quarter: 2011Q3

REPORT INFORMATION
  Report Type: 
  Country: None (occurrence: None)
  Receive Date: 20110805
  Receipt Date: 20100826
  Transmission Date: 20111222
  Serious: No
  Sender: FDA-Public Use
  Company Number: US-ABBOTT-10P-163-0666289-00

PATIENT
  Sex: Female
  Weight: 82.628 kg

DRUGS (6)
  1. MULTI-VITAMIN [Concomitant]
     Indication: PRODUCT USED FOR UNKNOWN INDICATION
     Route: 048
  2. COZAAR [Concomitant]
     Indication: PRODUCT USED FOR UNKNOWN INDICATION
     Route: 048
  3. NIASPAN [Suspect]
     Indication: BLOOD CHOLESTEROL INCREASED
  4. NIASPAN [Suspect]
     Indication: LOW DENSITY LIPOPROTEIN INCREASED
     Dosage: AT BEDTIME
     Route: 048
  5. NIASPAN [Suspect]
     Indication: LOW DENSITY LIPOPROTEIN DECREASED
     Dosage: AT BEDTIME
     Route: 048
  6. AMLODIPINE [Concomitant]
     Indication: PRODUCT USED FOR UNKNOWN INDICATION
     Route: 048

REACTIONS (7)
  - DRUG DOSE OMISSION [None]
  - FEELING HOT [None]
  - HYPERTENSION [None]
  - ANXIETY [None]
  - FLUSHING [None]
  - HIGH DENSITY LIPOPROTEIN INCREASED [None]
  - LOW DENSITY LIPOPROTEIN INCREASED [None]
